FAERS Safety Report 13965421 (Version 5)
Quarter: 2019Q1

REPORT INFORMATION
  Report Type: Report from Study
  Country: BE (occurrence: BE)
  Receive Date: 20170913
  Receipt Date: 20190109
  Transmission Date: 20190417
  Serious: Yes (Hospitalization, Congenital Anomaly, Other)
  Sender: FDA-Public Use
  Company Number: BE-SA-2017SA166879

PATIENT
  Age: 1 Day
  Sex: Female
  Weight: 2.9 kg

DRUGS (3)
  1. ALEMTUZUMAB [Suspect]
     Active Substance: ALEMTUZUMAB
     Dosage: UNK UNK,UNK
     Route: 064
     Dates: start: 20160620, end: 20160624
  2. ALEMTUZUMAB [Suspect]
     Active Substance: ALEMTUZUMAB
     Dosage: UNK UNK,UNK
     Route: 064
  3. AMINOPYRIDINE [Concomitant]
     Active Substance: DALFAMPRIDINE
     Dosage: 40 MG, UNK
     Route: 064

REACTIONS (16)
  - Neck deformity [Unknown]
  - Dysmorphism [Unknown]
  - Hypoxia [Unknown]
  - Subarachnoid haemorrhage [Unknown]
  - Scoliosis [Unknown]
  - Lung disorder [Unknown]
  - Laryngeal stenosis [Unknown]
  - Stridor [Unknown]
  - Muscle contracture [Unknown]
  - Foetal exposure timing unspecified [Unknown]
  - Mobility decreased [Unknown]
  - Cardiogenic shock [Unknown]
  - Gastrooesophageal reflux disease [Unknown]
  - Congenital multiplex arthrogryposis [Unknown]
  - Hand deformity [Unknown]
  - Foot deformity [Unknown]
